FAERS Safety Report 14536645 (Version 1)
Quarter: 2018Q1

REPORT INFORMATION
  Report Type: Spontaneous
  Country: US (occurrence: US)
  Receive Date: 20180215
  Receipt Date: 20180215
  Transmission Date: 20180509
  Serious: Yes (Hospitalization)
  Sender: FDA-Public Use
  Company Number: None

PATIENT
  Age: 71 Year
  Sex: Male
  Weight: 59.6 kg

DRUGS (13)
  1. HUMALOG [Suspect]
     Active Substance: INSULIN LISPRO
     Indication: TYPE 2 DIABETES MELLITUS
     Dosage: DATES OF USE - CHRONIC?DOSE - SSI?FREQUENCY - 4X DAILY ACHS
     Route: 058
  2. FLOMAX [Concomitant]
     Active Substance: TAMSULOSIN HYDROCHLORIDE
  3. LUPRON DEPOT [Concomitant]
     Active Substance: LEUPROLIDE ACETATE
  4. AMLODIPINE [Concomitant]
     Active Substance: AMLODIPINE BESYLATE
  5. ECOTRIN [Concomitant]
     Active Substance: ASPIRIN
  6. CARVEDILOL. [Concomitant]
     Active Substance: CARVEDILOL
  7. ATORVASTATIN [Concomitant]
     Active Substance: ATORVASTATIN
  8. NEURONTIN [Concomitant]
     Active Substance: GABAPENTIN
  9. LANTUS [Suspect]
     Active Substance: INSULIN GLARGINE
     Indication: TYPE 2 DIABETES MELLITUS
     Dosage: DATES OF USE - CHRONIC WITH RECENT REDUCTION?DOSE - 30 UNITS?FREQUENCY - NIGHTLY
     Route: 058
  10. LOPRESSOR [Concomitant]
     Active Substance: METOPROLOL TARTRATE
  11. EFFIENT [Concomitant]
     Active Substance: PRASUGREL HYDROCHLORIDE
  12. PROSCAR [Concomitant]
     Active Substance: FINASTERIDE
  13. DELTASONE [Concomitant]
     Active Substance: PREDNISONE

REACTIONS (4)
  - Therapy change [None]
  - Therapy cessation [None]
  - Blood glucose decreased [None]
  - Loss of consciousness [None]

NARRATIVE: CASE EVENT DATE: 20170713
